FAERS Safety Report 8573883-1 (Version None)
Quarter: 2012Q3

REPORT INFORMATION
  Report Type: 
  Country: None (occurrence: None)
  Receive Date: 20120806
  Receipt Date: 20120314
  Transmission Date: 20120928
  Serious: No
  Sender: FDA-Public Use
  Company Number: US-GLAXOSMITHKLINE-A0969734A

PATIENT
  Age: 84 Year
  Sex: Female

DRUGS (7)
  1. BLOOD THINNER [Concomitant]
  2. CONCURRENT MEDICATIONS [Concomitant]
  3. BLOOD PRESSURE MEDICATION [Concomitant]
  4. FLUTICASONE PROPIONATE [Suspect]
     Indication: ASTHMA
     Dosage: 1PUFF TWICE PER DAY
     Route: 055
     Dates: start: 20120313
  5. SLEEPING PILLS [Concomitant]
  6. CHOLESTEROL REDUCING AGENT [Concomitant]
  7. VITAMIN TAB [Concomitant]

REACTIONS (2)
  - INSOMNIA [None]
  - DRUG INEFFECTIVE [None]
